FAERS Safety Report 9647363 (Version 2)
Quarter: 2014Q2

REPORT INFORMATION
  Report Type: Spontaneous
  Country: US (occurrence: US)
  Receive Date: 20131028
  Receipt Date: 20140522
  Transmission Date: 20141212
  Serious: Yes (Other)
  Sender: FDA-Public Use
  Company Number: US-AMGEN-USASP2013074935

PATIENT
  Age: 82 Year
  Sex: Male

DRUGS (2)
  1. XGEVA [Suspect]
     Indication: HORMONE-REFRACTORY PROSTATE CANCER
     Dosage: UNK
     Route: 065
  2. ENZALUTAMIDE [Concomitant]
     Dosage: UNK

REACTIONS (3)
  - Exposed bone in jaw [Unknown]
  - Oral infection [Unknown]
  - Local swelling [Unknown]
